FAERS Safety Report 15275709 (Version 3)
Quarter: 2022Q4

REPORT INFORMATION
  Report Type: Spontaneous
  Country: US (occurrence: US)
  Receive Date: 20180814
  Receipt Date: 20221012
  Transmission Date: 20230113
  Serious: No
  Sender: FDA-Public Use
  Company Number: US-CELLTRION INC.-2018US020247

PATIENT

DRUGS (2)
  1. INFLECTRA [Suspect]
     Active Substance: INFLIXIMAB-DYYB
     Indication: Psoriatic arthropathy
     Dosage: AN INTERVAL OF 4 WEEKS AND 1 DAY
     Route: 065
     Dates: start: 20180523, end: 20180523
  2. INFLECTRA [Suspect]
     Active Substance: INFLIXIMAB-DYYB
     Dosage: NEXT SCHEDULED TREATMENT (INTERVAL OF 4 WEEKS AND 1 DAY), NEXT DOSE WAS SCHEDULED ON 19 JUL 2018
     Route: 065
     Dates: start: 20180621, end: 20180621

REACTIONS (2)
  - Off label use [Unknown]
  - Therapy interrupted [Unknown]
